FAERS Safety Report 15936372 (Version 1)
Quarter: 2019Q1

REPORT INFORMATION
  Report Type: Spontaneous
  Country: US (occurrence: US)
  Receive Date: 20190207
  Receipt Date: 20190207
  Transmission Date: 20190417
  Serious: Yes (Other)
  Sender: FDA-Public Use
  Company Number: None

PATIENT
  Age: 63 Year
  Sex: Male
  Weight: 89.1 kg

DRUGS (2)
  1. DR. SCHOLLS INGROWN TOENAIL PAIN RELIEVER [Suspect]
     Active Substance: SODIUM SULFIDE
     Indication: PAIN
     Dosage: ?          OTHER ROUTE:APPLIED TOPICALLY?
     Dates: start: 20190203, end: 20190204
  2. DR. SCHOLLS INGROWN TOENAIL PAIN RELIEVER [Suspect]
     Active Substance: SODIUM SULFIDE
     Indication: INGROWING NAIL
     Dosage: ?          OTHER ROUTE:APPLIED TOPICALLY?
     Dates: start: 20190203, end: 20190204

REACTIONS (7)
  - Hypersensitivity [None]
  - Chemical burn [None]
  - Localised infection [None]
  - Product use complaint [None]
  - Paronychia [None]
  - Toxicity to various agents [None]
  - Product formulation issue [None]

NARRATIVE: CASE EVENT DATE: 20190206
